APPROVED DRUG PRODUCT: TRYNGOLZA (AUTOINJECTOR)
Active Ingredient: OLEZARSEN SODIUM
Strength: EQ 80MG BASE/0.8ML (EQ 80MG BASE/0.8ML)
Dosage Form/Route: SOLUTION;SUBCUTANEOUS
Application: N218614 | Product #001
Applicant: IONIS PHARMACEUTICALS INC
Approved: Dec 19, 2024 | RLD: Yes | RS: Yes | Type: RX

PATENTS:
Patent 12509684 | Expires: May 1, 2034
Patent 9593333 | Expires: Feb 14, 2034
Patent 9157082 | Expires: Apr 27, 2032
Patent 9181549 | Expires: May 1, 2034
Patent 9163239 | Expires: May 1, 2034
Patent 9127276 | Expires: May 1, 2034

EXCLUSIVITY:
Code: ODE-515 | Date: Dec 19, 2031